FAERS Safety Report 9255350 (Version 1)
Quarter: 2013Q2

REPORT INFORMATION
  Report Type: Spontaneous
  Country: US (occurrence: None)
  Receive Date: 20130423
  Receipt Date: 20130423
  Transmission Date: 20140414
  Serious: Yes (Hospitalization)
  Sender: FDA-Public Use
  Company Number: None

PATIENT
  Age: 74 Year
  Sex: Male
  Weight: 56.4 kg

DRUGS (2)
  1. ALTEPLASE [Suspect]
     Route: 042
     Dates: start: 20130419, end: 20130419
  2. HEPARIN [Suspect]
     Route: 042
     Dates: start: 20130419, end: 20130419

REACTIONS (4)
  - Haematoma [None]
  - Obstructive airways disorder [None]
  - Post procedural haemorrhage [None]
  - Anaemia [None]
